FAERS Safety Report 21034197 (Version 3)
Quarter: 2023Q2

REPORT INFORMATION
  Report Type: Spontaneous
  Country: US (occurrence: US)
  Receive Date: 20220701
  Receipt Date: 20230501
  Transmission Date: 20230722
  Serious: Yes (Other)
  Sender: FDA-Public Use
  Company Number: US-PFIZER INC-PV202200012180

PATIENT
  Age: 51 Year
  Sex: Female

DRUGS (2)
  1. XELJANZ [Suspect]
     Active Substance: TOFACITINIB CITRATE
     Indication: Rheumatoid arthritis
     Dosage: 5 MG, 2X/DAY
     Route: 048
     Dates: start: 2019, end: 202105
  2. XELJANZ [Suspect]
     Active Substance: TOFACITINIB CITRATE
     Dosage: 5 MG, 2X/DAY
     Route: 048
     Dates: start: 202109

REACTIONS (8)
  - Hypothyroidism [Unknown]
  - Metabolic surgery [Unknown]
  - Product dose omission in error [Unknown]
  - Blood cholesterol abnormal [Unknown]
  - Fibromyalgia [Unknown]
  - Osteoarthritis [Unknown]
  - Blood pressure decreased [Unknown]
  - Illness [Unknown]

NARRATIVE: CASE EVENT DATE: 20210101
